FAERS Safety Report 7539293-0 (Version None)
Quarter: 2011Q2

REPORT INFORMATION
  Report Type: 
  Country: None (occurrence: None)
  Receive Date: 20110610
  Receipt Date: 20110531
  Transmission Date: 20111010
  Serious: Yes (Disabling)
  Sender: FDA-Public Use
  Company Number: US-ELI_LILLY_AND_COMPANY-US201106000598

PATIENT
  Sex: Male

DRUGS (3)
  1. HUMULIN R [Suspect]
     Indication: DIABETES MELLITUS
     Dosage: 30 U, EACH MORNING
  2. LANTUS [Concomitant]
     Dosage: UNK
  3. HUMULIN R [Suspect]
     Dosage: 40 U, EACH EVENING

REACTIONS (4)
  - NEUROPATHY PERIPHERAL [None]
  - SENSORY DISTURBANCE [None]
  - BLOOD GLUCOSE INCREASED [None]
  - DRUG DOSE OMISSION [None]
